FAERS Safety Report 7708793-2 (Version None)
Quarter: 2011Q3

REPORT INFORMATION
  Report Type: 
  Country: None (occurrence: None)
  Receive Date: 20110825
  Receipt Date: 20110818
  Transmission Date: 20111222
  Serious: Yes (Other)
  Sender: FDA-Public Use
  Company Number: US-BRISTOL-MYERS SQUIBB COMPANY-15986441

PATIENT
  Age: 44 Year
  Sex: Male

DRUGS (6)
  1. RITONAVIR [Suspect]
  2. HYDROCHLOROTHIAZIDE [Suspect]
  3. TRUVADA [Suspect]
  4. REYATAZ [Suspect]
  5. ZOLOFT [Suspect]
  6. PREDNISONE [Suspect]

REACTIONS (1)
  - WEIGHT INCREASED [None]
